FAERS Safety Report 5763957-2 (Version None)
Quarter: 2008Q2

REPORT INFORMATION
  Report Type: 
  Country: None (occurrence: None)
  Receive Date: 20080606
  Receipt Date: 20080606
  Transmission Date: 20081010
  Serious: Yes (Other)
  Sender: FDA-Public Use
  Company Number: None

PATIENT
  Age: 47 Year
  Sex: Female

DRUGS (1)
  1. LIDOCAINE HYDROCHLORIDE 1% INJ [Suspect]
     Indication: SKIN LACERATION
     Dosage: 5CC ONCE SUBDERMAL
     Route: 059
     Dates: start: 20080525, end: 20080605

REACTIONS (1)
  - DRUG INEFFECTIVE [None]
